FAERS Safety Report 9200515 (Version 1)
Quarter: 2013Q1

REPORT INFORMATION
  Report Type: Other
  Country: GB (occurrence: GB)
  Receive Date: 20130329
  Receipt Date: 20130329
  Transmission Date: 20140127
  Serious: Yes (Hospitalization)
  Sender: FDA-Public Use
  Company Number: GB-WATSON-2013-05381

PATIENT
  Age: 66 Year
  Sex: Female

DRUGS (1)
  1. DOXYCYCLINE (UNKNOWN) [Suspect]
     Indication: LOWER RESPIRATORY TRACT INFECTION
     Dosage: 1 DF, BID
     Route: 065
     Dates: start: 20130207

REACTIONS (9)
  - Dyspnoea [Unknown]
  - Malaise [Unknown]
  - Dyspepsia [Unknown]
  - Cold sweat [Unknown]
  - Speech disorder [Unknown]
  - Swollen tongue [Unknown]
  - Rash [Unknown]
  - Dizziness [Unknown]
  - Headache [Unknown]
